FAERS Safety Report 10694829 (Version 3)
Quarter: 2015Q1

REPORT INFORMATION
  Report Type: Report from Study
  Country: MX (occurrence: MX)
  Receive Date: 20150107
  Receipt Date: 20150112
  Transmission Date: 20150721
  Serious: Yes (Death, Hospitalization)
  Sender: FDA-Public Use
  Company Number: PHHY2012MX059714

PATIENT
  Age: 49 Year
  Sex: Male
  Weight: 50 kg

DRUGS (3)
  1. GLIVEC [Suspect]
     Active Substance: IMATINIB MESYLATE
     Dosage: 800 MG, QD
     Route: 065
     Dates: start: 200906, end: 201401
  2. HYDREA [Concomitant]
     Active Substance: HYDROXYUREA
     Indication: CHRONIC MYELOID LEUKAEMIA
     Route: 065
  3. GLIVEC [Suspect]
     Active Substance: IMATINIB MESYLATE
     Indication: CHRONIC MYELOID LEUKAEMIA
     Dosage: 600 MG, UNK
     Route: 065
     Dates: start: 20090526

REACTIONS (14)
  - Dehydration [Unknown]
  - Asthenia [Not Recovered/Not Resolved]
  - Dizziness [Unknown]
  - Disorientation [Fatal]
  - Blood uric acid decreased [Unknown]
  - Hypoglycaemia [Fatal]
  - Somnolence [Fatal]
  - Haemodynamic instability [Unknown]
  - Syncope [Recovering/Resolving]
  - Acute hepatic failure [Fatal]
  - Malnutrition [Unknown]
  - Chronic myeloid leukaemia [Fatal]
  - General physical health deterioration [Unknown]
  - Decreased appetite [Unknown]

NARRATIVE: CASE EVENT DATE: 201312
